FAERS Safety Report 8325193-5 (Version None)
Quarter: 2012Q2

REPORT INFORMATION
  Report Type: 
  Country: None (occurrence: None)
  Receive Date: 20120501
  Receipt Date: 20120419
  Transmission Date: 20120825
  Serious: Yes (Other)
  Sender: FDA-Public Use
  Company Number: JP-ROCHE-1037500

PATIENT
  Age: 70 Year
  Sex: Male

DRUGS (5)
  1. BASILIXIMAB [Concomitant]
     Indication: PROPHYLAXIS AGAINST TRANSPLANT REJECTION
     Dosage: DOSAGE IS UNCERTAIN.
     Route: 042
  2. CYCLOSPORINE [Concomitant]
     Indication: PROPHYLAXIS AGAINST TRANSPLANT REJECTION
     Dosage: DOSAGE IS UNCERTAIN.
     Route: 048
  3. MYCOPHENOLATE MOFETIL (CELLCEPT) [Suspect]
     Indication: PROPHYLAXIS AGAINST TRANSPLANT REJECTION
     Dosage: DOSAGE IS UNCERTAIN.
     Route: 048
  4. TACROLIMUS [Suspect]
     Indication: PROPHYLAXIS AGAINST TRANSPLANT REJECTION
     Dosage: DOSAGE IS UNCERTAIN.
     Route: 048
  5. PREDNISOLONE [Concomitant]
     Indication: PROPHYLAXIS AGAINST TRANSPLANT REJECTION
     Dosage: DOSAGE IS UNCERTAIN.
     Route: 048

REACTIONS (2)
  - PNEUMONIA [None]
  - THROMBOTIC THROMBOCYTOPENIC PURPURA [None]
